FAERS Safety Report 17059887 (Version 1)
Quarter: 2019Q4

REPORT INFORMATION
  Report Type: Spontaneous
  Country: US (occurrence: US)
  Receive Date: 20191121
  Receipt Date: 20191121
  Transmission Date: 20200122
  Serious: No
  Sender: FDA-Public Use
  Company Number: US-NOVOPROD-668019

PATIENT
  Age: 19 Year
  Sex: Male

DRUGS (1)
  1. NOVOLOG [Suspect]
     Active Substance: INSULIN ASPART
     Indication: TYPE 1 DIABETES MELLITUS
     Dosage: 1 UNIT PER 16/17 GRAMS OF CARBS
     Route: 058
     Dates: start: 201810

REACTIONS (6)
  - Abdominal pain upper [Not Recovered/Not Resolved]
  - Blood glucose increased [Recovered/Resolved]
  - Dyspepsia [Recovered/Resolved]
  - Weight decreased [Unknown]
  - Nausea [Not Recovered/Not Resolved]
  - Product quality issue [Unknown]

NARRATIVE: CASE EVENT DATE: 201810
